FAERS Safety Report 7339889-5 (Version None)
Quarter: 2011Q1

REPORT INFORMATION
  Report Type: 
  Country: None (occurrence: None)
  Receive Date: 20110228
  Receipt Date: 20110215
  Transmission Date: 20110831
  Serious: Yes (Hospitalization)
  Sender: FDA-Public Use
  Company Number: 027546

PATIENT
  Sex: Female
  Weight: 13 kg

DRUGS (4)
  1. KEFLEX [Suspect]
     Indication: LUNG INFECTION
     Dates: start: 20070101
  2. PHENOBARBITAL TAB [Suspect]
     Dates: start: 20070101
  3. KEPPRA [Suspect]
     Indication: CONVULSION
     Dosage: 2.5 ML BID, ORAL
     Route: 048
     Dates: start: 20100201
  4. EPILIM (EPILIM) (NOT SPECIFIED) [Suspect]
     Dates: start: 20070101

REACTIONS (2)
  - BRADYCARDIA [None]
  - CARDIOMYOPATHY [None]
